FAERS Safety Report 4594006-X (Version None)
Quarter: 2005Q1

REPORT INFORMATION
  Report Type: 
  Country: None (occurrence: None)
  Receive Date: 20050218
  Receipt Date: 20050210
  Transmission Date: 20050727
  Serious: Yes (Life-Threatening, Disabling)
  Sender: FDA-Public Use
  Company Number: 2005028472

PATIENT
  Age: 81 Year

DRUGS (1)
  1. BEXTRA [Suspect]
     Indication: RHEUMATOID ARTHRITIS
     Dosage: (20 MG), ORAL
     Route: 048

REACTIONS (2)
  - ISCHAEMIC STROKE [None]
  - VISUAL FIELD DEFECT [None]
